FAERS Safety Report 14559385 (Version 1)
Quarter: 2018Q1

REPORT INFORMATION
  Report Type: Report from Study
  Country: DE (occurrence: DE)
  Receive Date: 20180221
  Receipt Date: 20180221
  Transmission Date: 20180509
  Serious: Yes (Other)
  Sender: FDA-Public Use
  Company Number: DE-TEVA-2018-DE-858783

PATIENT
  Age: 55 Year
  Sex: Male
  Weight: 69 kg

DRUGS (47)
  1. DOXORUBICIN [Suspect]
     Active Substance: DOXORUBICIN
     Indication: DIFFUSE LARGE B-CELL LYMPHOMA
     Dosage: 93 MG, UNK (INFUSION RATE 8.3 (ML/MIN))
     Route: 041
     Dates: start: 20171113, end: 20171113
  2. PREDNISONE. [Suspect]
     Active Substance: PREDNISONE
     Dosage: 400 MG, UNK
     Route: 048
     Dates: start: 20171113, end: 20171116
  3. RIXIMYO [Suspect]
     Active Substance: RITUXIMAB
     Dosage: 700 MG, UNK (INFUSION RATE 2.08 (ML/MIN))
     Dates: start: 20171127, end: 20171127
  4. PREDNISOLUT [Concomitant]
     Active Substance: PREDNISOLONE
     Indication: PROPHYLAXIS
     Dosage: 100 MG, UNK
     Route: 042
     Dates: start: 20171218, end: 20171218
  5. PREDNISOLUT [Concomitant]
     Active Substance: PREDNISOLONE
     Dosage: 100 MG, UNK
     Route: 042
     Dates: start: 20171127, end: 20171127
  6. PREDNISOLUT [Concomitant]
     Active Substance: PREDNISOLONE
     Dosage: 100 MG, UNK
     Route: 048
     Dates: start: 20171103, end: 20171106
  7. AMPHO-MORONAL [Concomitant]
     Active Substance: AMPHOTERICIN B
     Dosage: UNK
     Route: 048
     Dates: start: 20171112, end: 20171118
  8. PARACETAMOL [Concomitant]
     Active Substance: ACETAMINOPHEN
     Dosage: 1 G, UNK
     Route: 048
     Dates: start: 20171127, end: 20171127
  9. RIXIMYO [Suspect]
     Active Substance: RITUXIMAB
     Indication: DIFFUSE LARGE B-CELL LYMPHOMA
     Dosage: 700 MG, UNK (INFUSION DATE 2.08 (ML/MIN))
     Dates: start: 20171218, end: 20171218
  10. CYCLOPHOSPHAMIDE. [Suspect]
     Active Substance: CYCLOPHOSPHAMIDE
     Dosage: 1400 MG, UNK (INFUSION RATE 2.08 (ML/MIN)
     Route: 041
     Dates: start: 20171128, end: 20171128
  11. PARACETAMOL [Concomitant]
     Active Substance: ACETAMINOPHEN
     Dosage: 1 G, UNK
     Route: 048
     Dates: start: 20171109, end: 20171109
  12. TAVEGIL [Concomitant]
     Active Substance: CLEMASTINE FUMARATE
     Dosage: UNK
     Route: 042
     Dates: start: 20171127, end: 20171127
  13. TAVEGIL [Concomitant]
     Active Substance: CLEMASTINE FUMARATE
     Dosage: UNK
     Route: 042
     Dates: start: 20171109, end: 20171109
  14. DOXORUBICIN [Suspect]
     Active Substance: DOXORUBICIN
     Dosage: 93 MG, UNK (INFUSION RATE 8.33 (ML/MIN))
     Route: 041
     Dates: start: 20171219, end: 20171219
  15. UROMITEXAN [Concomitant]
     Active Substance: MESNA
     Indication: PROPHYLAXIS
     Dosage: 400 MG, UNK
     Route: 048
     Dates: start: 20171113, end: 20171113
  16. TAVEGIL [Concomitant]
     Active Substance: CLEMASTINE FUMARATE
     Indication: PROPHYLAXIS
     Dosage: UNK
     Route: 042
     Dates: start: 20171218, end: 20171218
  17. VINCRISTINE [Suspect]
     Active Substance: VINCRISTINE
     Dosage: 2 MG, UNK
     Dates: start: 20171102, end: 20171102
  18. CYCLOPHOSPHAMIDE. [Suspect]
     Active Substance: CYCLOPHOSPHAMIDE
     Dosage: 1400 MG, UNK (INFUSION RATE 2.1 (ML/MIN))
     Route: 041
     Dates: start: 20171113, end: 20171113
  19. KEVATRIL [Concomitant]
     Active Substance: GRANISETRON HYDROCHLORIDE
     Dosage: 1 MG, UNK
     Route: 042
     Dates: start: 20171102, end: 20171102
  20. TAGAMET [Concomitant]
     Active Substance: CIMETIDINE
     Indication: PROPHYLAXIS
     Dosage: UNK
     Route: 048
     Dates: start: 20171127, end: 20171127
  21. PARACETAMOL [Concomitant]
     Active Substance: ACETAMINOPHEN
     Indication: PROPHYLAXIS
     Dosage: 1 G, UNK
     Route: 048
     Dates: start: 20171218, end: 20171218
  22. NEULASTA [Concomitant]
     Active Substance: PEGFILGRASTIM
     Dosage: 6 MG, UNK
     Route: 058
     Dates: start: 20171115, end: 20171115
  23. RANITIDIN [Concomitant]
     Active Substance: RANITIDINE HYDROCHLORIDE
     Dosage: UNK
     Route: 042
     Dates: start: 20171109, end: 20171109
  24. DOXORUBICIN [Suspect]
     Active Substance: DOXORUBICIN
     Dosage: 93 MG, UNK (INFUSION RATE 8.33 (ML/MIN))
     Route: 041
     Dates: start: 20171128, end: 20171128
  25. CYCLOPHOSPHAMIDE. [Suspect]
     Active Substance: CYCLOPHOSPHAMIDE
     Indication: DIFFUSE LARGE B-CELL LYMPHOMA
     Dosage: 1400 MG, UNK (INFUSION RATE 2.08 (ML/MIN))
     Route: 041
     Dates: start: 20171219, end: 20171219
  26. KEVATRIL [Concomitant]
     Active Substance: GRANISETRON HYDROCHLORIDE
     Indication: PROPHYLAXIS
     Dosage: 2 MG, UNK
     Route: 042
     Dates: start: 20171219, end: 20171219
  27. KEVATRIL [Concomitant]
     Active Substance: GRANISETRON HYDROCHLORIDE
     Dosage: 1 MG, UNK
     Route: 042
     Dates: start: 20171113, end: 20171113
  28. KEVATRIL [Concomitant]
     Active Substance: GRANISETRON HYDROCHLORIDE
     Dosage: 1 MG, UNK
     Route: 042
     Dates: start: 20171114, end: 20171114
  29. RANITIDIN [Concomitant]
     Active Substance: RANITIDINE HYDROCHLORIDE
     Indication: PROPHYLAXIS
     Dosage: UNK
     Route: 042
     Dates: start: 20171218, end: 20171218
  30. PREDNISONE. [Suspect]
     Active Substance: PREDNISONE
     Indication: DIFFUSE LARGE B-CELL LYMPHOMA
     Dosage: 400 MG, UNK
     Route: 048
     Dates: start: 20171219, end: 20171222
  31. KEVATRIL [Concomitant]
     Active Substance: GRANISETRON HYDROCHLORIDE
     Dosage: 1 MG, UNK
     Route: 042
     Dates: start: 20171129, end: 20171129
  32. MESNA. [Concomitant]
     Active Substance: MESNA
     Indication: PROPHYLAXIS
     Dosage: 2800 MG, UNK
     Route: 042
     Dates: start: 20171219, end: 20171219
  33. AMPHO-MORONAL [Concomitant]
     Active Substance: AMPHOTERICIN B
     Indication: PROPHYLAXIS
     Dosage: UNK UNK, BID
     Route: 048
     Dates: start: 20171218, end: 20171224
  34. AMPHO-MORONAL [Concomitant]
     Active Substance: AMPHOTERICIN B
     Dosage: UNK UNK, BID
     Route: 048
     Dates: start: 20171127, end: 20171203
  35. NEULASTA [Concomitant]
     Active Substance: PEGFILGRASTIM
     Dosage: 6 MG, UNK
     Route: 058
     Dates: start: 20171130, end: 20171130
  36. VINCRISTINE [Suspect]
     Active Substance: VINCRISTINE
     Indication: DIFFUSE LARGE B-CELL LYMPHOMA
     Dosage: 2 MG, UNK (INFUSION RATE 2 (ML/MIN))
     Route: 041
     Dates: start: 20171128, end: 20171128
  37. PREDNISOLUT [Concomitant]
     Active Substance: PREDNISOLONE
     Dosage: 100 MG, UNK
     Route: 042
     Dates: start: 20171109, end: 20171109
  38. PREDNISOLUT [Concomitant]
     Active Substance: PREDNISOLONE
     Dosage: 100 MG, UNK
     Route: 042
     Dates: start: 20171102, end: 20171102
  39. KEVATRIL [Concomitant]
     Active Substance: GRANISETRON HYDROCHLORIDE
     Dosage: 2 MG, UNK
     Route: 042
     Dates: start: 20171128, end: 20171128
  40. VINCRISTINE [Suspect]
     Active Substance: VINCRISTINE
     Dosage: 2 MG, UNK (INFUSION RATE 2 (ML/MIN))
     Route: 041
     Dates: start: 20171219, end: 20171219
  41. PREDNISONE. [Suspect]
     Active Substance: PREDNISONE
     Dosage: 400 MG, UNK
     Route: 048
     Dates: start: 20171128, end: 20171201
  42. RIXIMYO [Suspect]
     Active Substance: RITUXIMAB
     Dosage: 700 MG, UNK (INFUSION RATE 1.7 (ML/MIN))
     Dates: start: 20171109, end: 20171109
  43. KEVATRIL [Concomitant]
     Active Substance: GRANISETRON HYDROCHLORIDE
     Dosage: 2 MG, UNK
     Route: 042
     Dates: start: 20171220, end: 20171220
  44. MESNA. [Concomitant]
     Active Substance: MESNA
     Dosage: 2800 MG, UNK
     Route: 042
     Dates: start: 20171128, end: 20171128
  45. MESNA. [Concomitant]
     Active Substance: MESNA
     Dosage: 2800 MG, UNK
     Route: 042
     Dates: start: 20171113, end: 20171113
  46. PANTOZOL [Concomitant]
     Active Substance: PANTOPRAZOLE SODIUM
     Indication: PROPHYLAXIS
     Dosage: 40 MG, UNK
     Route: 048
     Dates: start: 20171112
  47. NEULASTA [Concomitant]
     Active Substance: PEGFILGRASTIM
     Indication: PROPHYLAXIS
     Dosage: 6 MG, UNK
     Route: 058
     Dates: start: 20171221, end: 20171221

REACTIONS (12)
  - Thalamic infarction [Not Recovered/Not Resolved]
  - Tension [Unknown]
  - Gait disturbance [Unknown]
  - Depressed mood [Unknown]
  - Red blood cell count decreased [Unknown]
  - Decreased appetite [Unknown]
  - Haemoglobin decreased [Unknown]
  - Fibrin D dimer increased [Not Recovered/Not Resolved]
  - Anxiety [Unknown]
  - Hypoaesthesia oral [Unknown]
  - Hypoaesthesia [Unknown]
  - Fatigue [Unknown]

NARRATIVE: CASE EVENT DATE: 20171109
